FAERS Safety Report 7054054-7 (Version None)
Quarter: 2010Q4

REPORT INFORMATION
  Report Type: 
  Country: None (occurrence: None)
  Receive Date: 20101015
  Receipt Date: 20100929
  Transmission Date: 20110411
  Serious: Yes (Death, Other)
  Sender: FDA-Public Use
  Company Number: 011323

PATIENT
  Age: 35 Year
  Sex: Male

DRUGS (5)
  1. BUSULFEX [Suspect]
     Indication: STEM CELL TRANSPLANT
     Dosage: 3.2 MG/KG, DAILY DOSE, INTRAVENOUS
     Route: 042
  2. ATG (ANTILYMPHOCYTE IMMUNOGLOBULIN (HORSE)) [Concomitant]
  3. MELPHALAN HYDROCHLORIDE [Concomitant]
  4. FLUDARABINE PHOSPHATE [Concomitant]
  5. TACROLIMUS [Concomitant]

REACTIONS (3)
  - ACUTE GRAFT VERSUS HOST DISEASE [None]
  - ACUTE LYMPHOCYTIC LEUKAEMIA [None]
  - LEUKAEMIA RECURRENT [None]
